FAERS Safety Report 8583870-5 (Version None)
Quarter: 2012Q3

REPORT INFORMATION
  Report Type: 
  Country: None (occurrence: None)
  Receive Date: 20120810
  Receipt Date: 20120731
  Transmission Date: 20120928
  Serious: Yes (Hospitalization, Other)
  Sender: FDA-Public Use
  Company Number: SG-009507513-1110USA03904

PATIENT

DRUGS (18)
  1. BLINDED EZETIMIBE (+) SIMVASTATIN [Suspect]
     Indication: ACUTE CORONARY SYNDROME
     Dosage: UNK
     Route: 048
     Dates: start: 20070212
  2. SIMVASTATIN [Suspect]
     Indication: ACUTE CORONARY SYNDROME
     Dosage: UNK
     Route: 048
     Dates: start: 20070212
  3. VASTAREL [Concomitant]
     Dosage: 60 MG, QD
     Route: 048
     Dates: start: 20110624
  4. PLACEBO [Suspect]
     Indication: ACUTE CORONARY SYNDROME
     Dosage: UNK
     Route: 048
     Dates: start: 20070212
  5. BLINDED THERAPY [Suspect]
     Indication: ACUTE CORONARY SYNDROME
     Dosage: UNK
     Route: 048
     Dates: start: 20070212
  6. IMDUR [Concomitant]
     Dosage: 60 MG, QD
     Route: 048
     Dates: start: 20071011
  7. BLINDED PRE TRIAL THERAPY [Suspect]
     Indication: ACUTE CORONARY SYNDROME
     Dosage: UNK
     Route: 048
     Dates: start: 20070212
  8. BLINDED POST TRIAL THERAPY [Suspect]
     Indication: ACUTE CORONARY SYNDROME
     Dosage: UNK
     Route: 048
     Dates: start: 20070212
  9. ASPIRIN [Concomitant]
     Dosage: 100 MG, QD
     Route: 048
     Dates: start: 20070204
  10. METFORMIN HYDROCHLORIDE [Concomitant]
     Dosage: 2550 MG, QD
     Route: 048
     Dates: start: 20070309
  11. KETOTOP [Concomitant]
     Dosage: 30 MG, PRN
     Route: 062
     Dates: start: 20110624
  12. BISOPROLOL FUMARATE [Concomitant]
     Dosage: 7.5 MG, QD
     Route: 048
     Dates: start: 20070309
  13. NITROGLYCERIN [Concomitant]
     Dosage: 0.5 MG, PRN
     Route: 060
     Dates: start: 20070810
  14. PLACEBO [Suspect]
     Indication: ACUTE CORONARY SYNDROME
     Dosage: UNK
     Route: 048
     Dates: start: 20070212
  15. HYTRIN [Concomitant]
     Dosage: 1 MG, QD
     Route: 048
     Dates: start: 20090526
  16. ENALAPRIL MALEATE [Concomitant]
     Dosage: 25 MG, QD
     Route: 048
     Dates: start: 20070309
  17. GLIPIZIDE [Concomitant]
     Dosage: 20 MG, QD
     Route: 048
     Dates: start: 20070204
  18. FAMOTIDINE [Concomitant]
     Dosage: 40 MG, QD
     Route: 048
     Dates: start: 20070619

REACTIONS (1)
  - COLON CANCER [None]
